FAERS Safety Report 7797057-7 (Version None)
Quarter: 2011Q4

REPORT INFORMATION
  Report Type: 
  Country: None (occurrence: None)
  Receive Date: 20111003
  Receipt Date: 20110914
  Transmission Date: 20120403
  Serious: Yes (Hospitalization)
  Sender: FDA-Public Use
  Company Number: IT-ACCORD-010720

PATIENT
  Age: 65 Year
  Sex: Female

DRUGS (2)
  1. TOPIRAMATE [Suspect]
     Indication: MIGRAINE
     Dosage: 50.00-MG-1.0DAYS
  2. CITALOPRAM HYDROBROMIDE [Suspect]
     Indication: DEPRESSION
     Dosage: 20.00MG-1.0DAYS

REACTIONS (10)
  - CONFUSIONAL STATE [None]
  - MYOCLONUS [None]
  - HYPERREFLEXIA [None]
  - SEROTONIN SYNDROME [None]
  - RESTLESSNESS [None]
  - PYREXIA [None]
  - IRRITABILITY [None]
  - TOXICITY TO VARIOUS AGENTS [None]
  - DRUG INTERACTION [None]
  - TREMOR [None]
